FAERS Safety Report 10835168 (Version 1)
Quarter: 2015Q1

REPORT INFORMATION
  Report Type: Spontaneous
  Country: KR (occurrence: KR)
  Receive Date: 20150219
  Receipt Date: 20150219
  Transmission Date: 20150721
  Serious: Yes (Hospitalization)
  Sender: FDA-Public Use
  Company Number: PHHY2015KR016928

PATIENT
  Age: 37 Year
  Sex: Female

DRUGS (1)
  1. PHENTERMINE [Suspect]
     Active Substance: PHENTERMINE
     Indication: WEIGHT DECREASED
     Route: 065

REACTIONS (15)
  - Oedema peripheral [Unknown]
  - Ejection fraction decreased [Recovering/Resolving]
  - Pulmonary oedema [Unknown]
  - Cardiomyopathy [Unknown]
  - Malaise [Unknown]
  - Myalgia [Unknown]
  - Dyspnoea [Unknown]
  - Cardiac ventricular thrombosis [Unknown]
  - Cardiomegaly [Unknown]
  - Sinus tachycardia [Recovering/Resolving]
  - Ventricular hypokinesia [Recovering/Resolving]
  - Dyspnoea exertional [Unknown]
  - Cough [Unknown]
  - Pyrexia [Unknown]
  - Oedema [Unknown]
